FAERS Safety Report 4420541-0 (Version None)
Quarter: 2004Q3

REPORT INFORMATION
  Report Type: 
  Country: None (occurrence: None)
  Receive Date: 20040809
  Receipt Date: 20040325
  Transmission Date: 20050211
  Serious: No
  Sender: FDA-Public Use
  Company Number: US-GLAXOSMITHKLINE-A0504559A

PATIENT
  Age: 63 Year
  Sex: Male

DRUGS (4)
  1. PAXIL CR [Suspect]
     Indication: MOOD SWINGS
     Dosage: 25MG PER DAY
     Route: 048
     Dates: start: 20040301
  2. ALTACE [Concomitant]
  3. PLAVIX [Concomitant]
  4. ASPIRIN [Concomitant]

REACTIONS (10)
  - ACTIVITIES OF DAILY LIVING IMPAIRED [None]
  - FATIGUE [None]
  - FEELING ABNORMAL [None]
  - HYPOAESTHESIA ORAL [None]
  - INSOMNIA [None]
  - MUSCLE FATIGUE [None]
  - PARAESTHESIA ORAL [None]
  - SOMNOLENCE [None]
  - TONGUE DISORDER [None]
  - YAWNING [None]
